FAERS Safety Report 5914837-0 (Version None)
Quarter: 2008Q4

REPORT INFORMATION
  Report Type: 
  Country: None (occurrence: None)
  Receive Date: 20081010
  Receipt Date: 20080929
  Transmission Date: 20090506
  Serious: Yes (Other)
  Sender: FDA-Public Use
  Company Number: PHHY2008BR23175

PATIENT
  Age: 47 Year
  Sex: Female
  Weight: 50 kg

DRUGS (1)
  1. CATAFLAM [Suspect]
     Indication: PAIN
     Dosage: 50 MG,
     Route: 048
     Dates: start: 20080926

REACTIONS (4)
  - ASTHENIA [None]
  - DIZZINESS [None]
  - MEMORY IMPAIRMENT [None]
  - PRESYNCOPE [None]
